FAERS Safety Report 4557832-9 (Version None)
Quarter: 2005Q1

REPORT INFORMATION
  Report Type: 
  Country: None (occurrence: None)
  Receive Date: 20050103
  Receipt Date: 20041004
  Transmission Date: 20050727
  Serious: Yes (Other)
  Sender: FDA-Public Use
  Company Number: 2004UW19561

PATIENT
  Age: 69 Year
  Sex: Male
  Weight: 86.3649 kg

DRUGS (3)
  1. CRESTOR [Suspect]
     Indication: HYPERCHOLESTEROLAEMIA
     Dosage: 10 MG PO
     Route: 048
     Dates: start: 20040801, end: 20040901
  2. QUININE SULFATE [Concomitant]
  3. ABGONE SUPPLEMENT [Concomitant]

REACTIONS (2)
  - HAEMATOCHEZIA [None]
  - INSOMNIA [None]
